FAERS Safety Report 16971980 (Version 1)
Quarter: 2019Q4

REPORT INFORMATION
  Report Type: Spontaneous
  Country: US (occurrence: US)
  Receive Date: 20191029
  Receipt Date: 20191029
  Transmission Date: 20200122
  Serious: No
  Sender: FDA-Public Use
  Company Number: US-GLAXOSMITHKLINE-US2019TSO194977

PATIENT
  Sex: Female

DRUGS (1)
  1. NIRAPARIB CAPSULE [Suspect]
     Active Substance: NIRAPARIB
     Indication: PRODUCT USED FOR UNKNOWN INDICATION
     Dosage: UNK

REACTIONS (16)
  - Nausea [Unknown]
  - Tremor [Unknown]
  - Ear disorder [Unknown]
  - Dizziness [Unknown]
  - Hot flush [Unknown]
  - Feeling abnormal [Unknown]
  - Nightmare [Unknown]
  - Dyspepsia [Unknown]
  - Fatigue [Unknown]
  - Sleep disorder [Unknown]
  - Constipation [Unknown]
  - Dysphonia [Unknown]
  - Dry mouth [Unknown]
  - Headache [Unknown]
  - Blood pressure increased [Unknown]
  - Balance disorder [Unknown]
